FAERS Safety Report 10205602 (Version 1)
Quarter: 2014Q2

REPORT INFORMATION
  Report Type: Spontaneous
  Country: US (occurrence: US)
  Receive Date: 20140529
  Receipt Date: 20140529
  Transmission Date: 20141212
  Serious: No
  Sender: FDA-Public Use
  Company Number: US-GILEAD-2014-0103509

PATIENT
  Sex: Male

DRUGS (5)
  1. SOVALDI [Suspect]
     Indication: PRODUCT USED FOR UNKNOWN INDICATION
     Route: 065
  2. SIMEPREVIR [Suspect]
     Indication: HEPATITIS C
     Dosage: 150 MG, UNK
     Route: 048
  3. ATAZANAVIR [Concomitant]
  4. RITONAVIR [Concomitant]
     Indication: HIV INFECTION
  5. EPZICOM [Concomitant]
     Indication: HIV INFECTION

REACTIONS (1)
  - Off label use [Not Recovered/Not Resolved]
